FAERS Safety Report 9269711 (Version 7)
Quarter: 2014Q2

REPORT INFORMATION
  Report Type: Spontaneous
  Country: US (occurrence: US)
  Receive Date: 20130503
  Receipt Date: 20140626
  Transmission Date: 20141212
  Serious: Yes (Other)
  Sender: FDA-Public Use
  Company Number: US-PFIZER INC-2013137054

PATIENT
  Age: 55 Year
  Sex: Female
  Weight: 59 kg

DRUGS (6)
  1. LIPITOR [Suspect]
     Indication: CARDIOVASCULAR EVENT PROPHYLAXIS
     Dosage: 10 MG, 1X/DAY (AT BED TIME)
     Route: 048
     Dates: start: 200509, end: 200607
  2. LIPITOR [Suspect]
     Indication: LOW DENSITY LIPOPROTEIN INCREASED
     Dosage: 10 MG, 1X/DAY
     Route: 048
     Dates: start: 200804, end: 201111
  3. ATENOLOL [Concomitant]
     Dosage: 50 MG, 1X/DAY
     Route: 048
     Dates: start: 20040811, end: 20120401
  4. METFORMIN [Concomitant]
     Dosage: 500 MG, 2X/DAY
     Route: 048
     Dates: start: 20091023, end: 20120314
  5. PATADAY [Concomitant]
     Dosage: 1X/DAY, INSTILLED AT ONE DROP (OF 0.200% SOLUTION) INTO EACH EYE EVERY MORNING
     Route: 047
     Dates: start: 20100209, end: 20120227
  6. ATORVASTATIN [Concomitant]
     Indication: HYPERLIPIDAEMIA
     Dosage: 20 MG, 1X/DAY, AT BED TIME
     Route: 048
     Dates: start: 20111220

REACTIONS (1)
  - Type 2 diabetes mellitus [Not Recovered/Not Resolved]
